FAERS Safety Report 4345934-1 (Version None)
Quarter: 2004Q2

REPORT INFORMATION
  Report Type: 
  Country: None (occurrence: None)
  Receive Date: 20040420
  Receipt Date: 20040408
  Transmission Date: 20050107
  Serious: Yes (Life-Threatening)
  Sender: FDA-Public Use
  Company Number: OMPQ-PR-0404L-0243

PATIENT
  Age: 23 Day
  Sex: Male

DRUGS (1)
  1. OMNIPAQUE 70 [Suspect]
     Indication: INTUSSUSCEPTION
     Dosage: 20 ML, 300 MG/ML 640 MOSM/KG H2O, SINGLE DOSE, P.O.
     Route: 048

REACTIONS (9)
  - ABDOMINAL DISTENSION [None]
  - ASCITES [None]
  - ASPIRATION [None]
  - BLOOD CULTURE POSITIVE [None]
  - CANDIDIASIS [None]
  - PERITONEAL FLUID ANALYSIS ABNORMAL [None]
  - PERITONITIS [None]
  - PNEUMATOSIS CYSTOIDES INTESTINALIS [None]
  - THROMBOCYTOPENIA [None]
